FAERS Safety Report 10073990 (Version 1)
Quarter: 2014Q2

REPORT INFORMATION
  Report Type: Spontaneous
  Country: US (occurrence: US)
  Receive Date: 20140412
  Receipt Date: 20140412
  Transmission Date: 20141212
  Serious: No
  Sender: FDA-Public Use
  Company Number: US-B.I. PHARMACEUTICALS,INC./RIDGEFIELD-2014-BI-14506BP

PATIENT
  Sex: Male
  Weight: 32.2 kg

DRUGS (5)
  1. PRADAXA [Suspect]
     Indication: ATRIAL FIBRILLATION
     Dosage: 300 MG
     Route: 048
     Dates: start: 2010, end: 20131203
  2. PRADAXA [Suspect]
     Dosage: 300 MG
     Route: 048
     Dates: start: 20131207
  3. LOSARTAN [Concomitant]
     Indication: HYPERTENSION
     Dosage: 50 MG
     Route: 048
  4. ADVAIR [Concomitant]
     Indication: DYSPNOEA
     Dosage: FORMULATION: INHALATION AEROSOL, DOSE PER APPLICATION: 250 MCG / 50 MCG; DAILY DOSE: 500 MCG / 100 M
     Route: 055
  5. LIPITOR [Concomitant]
     Indication: BLOOD CHOLESTEROL INCREASED
     Dosage: 20 MG
     Route: 048

REACTIONS (1)
  - Musculoskeletal pain [Recovered/Resolved]
